FAERS Safety Report 8446372 (Version 3)
Quarter: 2014Q2

REPORT INFORMATION
  Report Type: Spontaneous
  Country: BR (occurrence: BR)
  Receive Date: 20120307
  Receipt Date: 20140501
  Transmission Date: 20141212
  Serious: Yes (Hospitalization)
  Sender: FDA-Public Use
  Company Number: BR-PFIZER INC-2012056701

PATIENT
  Age: 13 Year
  Sex: Male
  Weight: 47 kg

DRUGS (2)
  1. GENOTROPIN [Suspect]
     Indication: FAILURE TO THRIVE
     Dosage: 2 MG, DAILY (SIX TIMES PER WEEK)
     Route: 058
     Dates: start: 201201
  2. NEXIUM [Concomitant]
     Indication: GASTROOESOPHAGEAL REFLUX DISEASE
     Dosage: 20 MG (ONE CAPSULE) DAILY
     Dates: start: 2010

REACTIONS (2)
  - Appendicitis [Unknown]
  - Injection site haemorrhage [Recovered/Resolved]
